FAERS Safety Report 14193631 (Version 1)
Quarter: 2017Q4

REPORT INFORMATION
  Report Type: Report from Study
  Country: None (occurrence: US)
  Receive Date: 20171115
  Receipt Date: 20171115
  Transmission Date: 20180321
  Serious: Yes (Death)
  Sender: FDA-Public Use
  Company Number: US-VIFOR (INTERNATIONAL) INC.-VIT-2017-12336

PATIENT
  Age: 82 Year
  Sex: Male

DRUGS (16)
  1. SIMVASTATIN. [Concomitant]
     Active Substance: SIMVASTATIN
  2. DOXAZOSIN [Concomitant]
     Active Substance: DOXAZOSIN\DOXAZOSIN MESYLATE
  3. LORATADINE. [Concomitant]
     Active Substance: LORATADINE
  4. CARVEDILOL. [Concomitant]
     Active Substance: CARVEDILOL
  5. ISOSORB MONO [Concomitant]
     Active Substance: ISOSORBIDE MONONITRATE
  6. VITAMIN B12 [Concomitant]
     Active Substance: CYANOCOBALAMIN
  7. ATROVENT [Concomitant]
     Active Substance: IPRATROPIUM BROMIDE
  8. DOK [Concomitant]
     Active Substance: DOCUSATE SODIUM
  9. HYDRALAZINE [Concomitant]
     Active Substance: HYDRALAZINE HYDROCHLORIDE
  10. VELTASSA [Suspect]
     Active Substance: PATIROMER
     Indication: HYPERKALAEMIA
     Route: 048
     Dates: start: 20170428
  11. VITAMINS NOS [Concomitant]
     Active Substance: VITAMINS
  12. BUMETANIDE. [Concomitant]
     Active Substance: BUMETANIDE
  13. FUROSEMIDE. [Concomitant]
     Active Substance: FUROSEMIDE
  14. TRAZODONE [Concomitant]
     Active Substance: TRAZODONE HYDROCHLORIDE
  15. LASIX [Concomitant]
     Active Substance: FUROSEMIDE
  16. ALLOPURINOL. [Concomitant]
     Active Substance: ALLOPURINOL

REACTIONS (1)
  - Death [Fatal]

NARRATIVE: CASE EVENT DATE: 20171103
